FAERS Safety Report 12353717 (Version 2)
Quarter: 2016Q3

REPORT INFORMATION
  Report Type: Spontaneous
  Country: US (occurrence: US)
  Receive Date: 20160511
  Receipt Date: 20160808
  Transmission Date: 20161109
  Serious: No
  Sender: FDA-Public Use
  Company Number: US-VIFOR (INTERNATIONAL) INC.-VIT-2016-01778

PATIENT
  Age: 86 Year
  Sex: Male
  Weight: 82.5 kg

DRUGS (2)
  1. MIRCERA [Suspect]
     Active Substance: METHOXY POLYETHYLENE GLYCOL-EPOETIN BETA
     Indication: HAEMOGLOBIN DECREASED
     Route: 040
     Dates: end: 20160404
  2. CALCITRIOL. [Concomitant]
     Active Substance: CALCITRIOL
     Route: 048

REACTIONS (2)
  - Nausea [Recovering/Resolving]
  - Vomiting [Recovering/Resolving]

NARRATIVE: CASE EVENT DATE: 20160404
